FAERS Safety Report 9165967 (Version 1)
Quarter: 2013Q1

REPORT INFORMATION
  Report Type: Spontaneous
  Country: US (occurrence: US)
  Receive Date: 20130315
  Receipt Date: 20130315
  Transmission Date: 20140127
  Serious: Yes (Hospitalization)
  Sender: FDA-Public Use
  Company Number: US-TEVA-391844USA

PATIENT
  Sex: Female

DRUGS (1)
  1. MUPIROCIN [Suspect]

REACTIONS (5)
  - Oropharyngeal pain [Not Recovered/Not Resolved]
  - Hypertension [Not Recovered/Not Resolved]
  - Fungal infection [Not Recovered/Not Resolved]
  - Bacterial infection [Not Recovered/Not Resolved]
  - Drug dispensing error [Not Recovered/Not Resolved]
